FAERS Safety Report 7122686-3 (Version None)
Quarter: 2010Q4

REPORT INFORMATION
  Report Type: 
  Country: None (occurrence: None)
  Receive Date: 20101124
  Receipt Date: 20101111
  Transmission Date: 20110411
  Serious: Yes (Other)
  Sender: FDA-Public Use
  Company Number: US-PFIZER INC-2010149422

PATIENT
  Sex: Female
  Weight: 55.3 kg

DRUGS (2)
  1. PREMPRO [Suspect]
     Indication: VULVOVAGINAL DRYNESS
     Dosage: 0.45/1.5
     Dates: start: 20100101
  2. ESTRACE [Suspect]
     Indication: VULVOVAGINAL DRYNESS
     Dosage: 2 G, EVERY 2 WEEKS
     Dates: start: 20100101

REACTIONS (3)
  - BACK PAIN [None]
  - BONE DENSITY DECREASED [None]
  - VAGINAL HAEMORRHAGE [None]
